FAERS Safety Report 11046836 (Version 1)
Quarter: 2015Q2

REPORT INFORMATION
  Report Type: Spontaneous
  Country: GB (occurrence: GB)
  Receive Date: 20150420
  Receipt Date: 20150420
  Transmission Date: 20150821
  Serious: Yes (Other)
  Sender: FDA-Public Use
  Company Number: GB-TEVA-555016ACC

PATIENT
  Age: 60 Year
  Weight: 38.56 kg

DRUGS (1)
  1. SIMVASTATIN. [Suspect]
     Active Substance: SIMVASTATIN
     Indication: BLOOD CHOLESTEROL INCREASED
     Dosage: 40 MILLIGRAM DAILY; AT NIGHT; DAILY DOSE 40 MILLIGRAM
     Dates: start: 2008

REACTIONS (5)
  - Hypokinesia [Unknown]
  - Muscle rigidity [Recovered/Resolved]
  - Psychiatric symptom [Unknown]
  - Myalgia [Recovered/Resolved]
  - Impaired work ability [Unknown]

NARRATIVE: CASE EVENT DATE: 201406
